FAERS Safety Report 12390544 (Version 1)
Quarter: 2016Q2

REPORT INFORMATION
  Report Type: Spontaneous
  Country: US (occurrence: US)
  Receive Date: 20160520
  Receipt Date: 20160520
  Transmission Date: 20160815
  Serious: No
  Sender: FDA-Public Use
  Company Number: US-MDT-ADR-2016-00518

PATIENT
  Age: 61 Year
  Sex: Male

DRUGS (4)
  1. BACLOFEN. [Suspect]
     Active Substance: BACLOFEN
     Dosage: 4.62 MG/BOLUS/153.82 MG/DAY
     Route: 037
     Dates: end: 201510
  2. CLONIDINE. [Suspect]
     Active Substance: CLONIDINE
     Dosage: 9.99 MG/BOLUS 3969.72 MG/DAY
     Route: 037
     Dates: end: 201510
  3. FENTANYL. [Suspect]
     Active Substance: FENTANYL
     Dosage: 99.9 MG/BOLUS 691.7 MG/DAY
     Route: 037
     Dates: end: 201510
  4. BUPIVACAINE. [Suspect]
     Active Substance: BUPIVACAINE
     Route: 037
     Dates: end: 201510

REACTIONS (1)
  - Pain [Unknown]
